FAERS Safety Report 7042175-4 (Version None)
Quarter: 2010Q4

REPORT INFORMATION
  Report Type: 
  Country: None (occurrence: None)
  Receive Date: 20101013
  Receipt Date: 20100421
  Transmission Date: 20110411
  Serious: No
  Sender: FDA-Public Use
  Company Number: US-ASTRAZENECA-2010SE14269

PATIENT
  Age: 26048 Day
  Sex: Male
  Weight: 90.7 kg

DRUGS (10)
  1. SYMBICORT [Suspect]
     Indication: DYSPNOEA
     Dosage: 80/4.5 2 PUFFS IN AM AND 2 PUFFS IN PM, TOTAL DAILY DOSAGE: 320 MCG
     Route: 055
     Dates: start: 20100309
  2. SYMBICORT [Suspect]
     Indication: ASTHMA
     Dosage: 80/4.5 2 PUFFS IN AM AND 2 PUFFS IN PM, TOTAL DAILY DOSAGE: 320 MCG
     Route: 055
     Dates: start: 20100309
  3. SYMBICORT [Suspect]
     Dosage: 80/4.5 2 PUFFS IN AM AND 2 PUFFS IN PM, TOTAL DAILY DOSAGE: 320 MCG
     Route: 055
     Dates: start: 20100401, end: 20100418
  4. SYMBICORT [Suspect]
     Dosage: 80/4.5 2 PUFFS IN AM AND 2 PUFFS IN PM, TOTAL DAILY DOSAGE: 320 MCG
     Route: 055
     Dates: start: 20100401, end: 20100418
  5. SYMBICORT [Suspect]
     Dosage: 160/4.5 2 PUFFS IN AM AND 2 PUFFS IN PM, TOTAL DAILY DOSAGE: 640 MCG
     Route: 055
     Dates: start: 20100401
  6. SYMBICORT [Suspect]
     Dosage: 160/4.5 2 PUFFS IN AM AND 2 PUFFS IN PM, TOTAL DAILY DOSAGE: 640 MCG
     Route: 055
     Dates: start: 20100401
  7. TOPROL-XL [Concomitant]
     Route: 048
  8. ASPIRIN [Concomitant]
     Route: 048
  9. PROAIR HFA [Concomitant]
  10. UNKNOWN BP MEDICATION [Concomitant]

REACTIONS (4)
  - DRUG INEFFECTIVE [None]
  - DYSPNOEA [None]
  - INSOMNIA [None]
  - MUSCLE SPASMS [None]
